FAERS Safety Report 16691402 (Version 1)
Quarter: 2019Q3

REPORT INFORMATION
  Report Type: Spontaneous
  Country: JP (occurrence: JP)
  Receive Date: 20190812
  Receipt Date: 20190812
  Transmission Date: 20191004
  Serious: Yes (Death, Other)
  Sender: FDA-Public Use
  Company Number: JP-ACTELION-A-CH2019-193989

PATIENT

DRUGS (1)
  1. EPOPROSTENOL SODIUM. [Suspect]
     Active Substance: EPOPROSTENOL SODIUM
     Indication: PULMONARY ARTERIAL HYPERTENSION
     Route: 042

REACTIONS (5)
  - Transplant evaluation [Unknown]
  - Pulmonary arterial pressure increased [Unknown]
  - Cardiac index increased [Unknown]
  - Lung transplant [Unknown]
  - Death [Fatal]
